FAERS Safety Report 13076120 (Version 1)
Quarter: 2016Q4

REPORT INFORMATION
  Report Type: Spontaneous
  Country: US (occurrence: US)
  Receive Date: 20161230
  Receipt Date: 20161230
  Transmission Date: 20170207
  Serious: No
  Sender: FDA-Public Use
  Company Number: None

PATIENT
  Age: 86 Year
  Sex: Female

DRUGS (1)
  1. CAPECITABINE 500MG ACCORD HEALTHCARE, INC [Suspect]
     Active Substance: CAPECITABINE
     Indication: PRODUCT USED FOR UNKNOWN INDICATION
     Dosage: 2 TABS TWICE DAILY FOR 14
     Route: 048
     Dates: start: 20150923, end: 20161228

REACTIONS (2)
  - Metastatic neoplasm [None]
  - Therapy cessation [None]

NARRATIVE: CASE EVENT DATE: 20161228
